FAERS Safety Report 6256112-3 (Version None)
Quarter: 2009Q2

REPORT INFORMATION
  Report Type: 
  Country: None (occurrence: None)
  Receive Date: 20090630
  Receipt Date: 20090630
  Transmission Date: 20091009
  Serious: Yes (Other)
  Sender: FDA-Public Use
  Company Number: None

PATIENT
  Sex: Female
  Weight: 63.5036 kg

DRUGS (3)
  1. NUTROPIN AQ [Suspect]
     Indication: BODY HEIGHT BELOW NORMAL
     Dosage: 3.1 MG DAILY SQ
     Route: 058
     Dates: start: 19970926, end: 20090110
  2. NUTROPIN AQ [Suspect]
     Indication: TURNER'S SYNDROME
     Dosage: 3.1 MG DAILY SQ
     Route: 058
     Dates: start: 19970926, end: 20090110
  3. PREMARIN TABS [Concomitant]

REACTIONS (1)
  - TOOTH RESORPTION [None]
